FAERS Safety Report 4718762-2 (Version None)
Quarter: 2005Q3

REPORT INFORMATION
  Report Type: 
  Country: None (occurrence: None)
  Receive Date: 20050719
  Receipt Date: 20050705
  Transmission Date: 20060218
  Serious: Yes (Hospitalization)
  Sender: FDA-Public Use
  Company Number: USA040157654

PATIENT
  Age: 54 Year
  Sex: Female
  Weight: 85 kg

DRUGS (11)
  1. STRATTERA [Suspect]
     Indication: ATTENTION DEFICIT/HYPERACTIVITY DISORDER
     Dosage: 40 MG DAY
     Dates: start: 20040124
  2. CYMBALTA [Suspect]
  3. WELLBUTRIN [Concomitant]
  4. PAXIL [Concomitant]
  5. FOSAMAX [Concomitant]
  6. FLEXERIL [Concomitant]
  7. TOPROL-XL [Concomitant]
  8. MAXZIDE [Concomitant]
  9. PROVIGIL [Concomitant]
  10. VITAMIN CAP [Concomitant]
  11. ALEVE [Concomitant]

REACTIONS (5)
  - ELECTROCARDIOGRAM QRS COMPLEX PROLONGED [None]
  - FATIGUE [None]
  - MIDDLE INSOMNIA [None]
  - SUPRAVENTRICULAR TACHYCARDIA [None]
  - WOLFF-PARKINSON-WHITE SYNDROME [None]
